FAERS Safety Report 15822047 (Version 1)
Quarter: 2019Q1

REPORT INFORMATION
  Report Type: Spontaneous
  Country: US (occurrence: US)
  Receive Date: 20190114
  Receipt Date: 20190114
  Transmission Date: 20190417
  Serious: Yes (Disabling)
  Sender: FDA-Public Use
  Company Number: None

PATIENT
  Age: 49 Year
  Sex: Female
  Weight: 96.3 kg

DRUGS (10)
  1. LEVAQUIN [Suspect]
     Active Substance: LEVOFLOXACIN
     Indication: SINUSITIS
     Dosage: ?          QUANTITY:1 CAPSULE(S);?
     Route: 048
     Dates: start: 20141203, end: 20141208
  2. METHOTREXATE. [Concomitant]
     Active Substance: METHOTREXATE
  3. VITAMIN D [Concomitant]
     Active Substance: CHOLECALCIFEROL
  4. SYNTHROID [Concomitant]
     Active Substance: LEVOTHYROXINE SODIUM
  5. ADVAIR HFA [Concomitant]
     Active Substance: FLUTICASONE PROPIONATE\SALMETEROL XINAFOATE
  6. KLONIPIN [Concomitant]
     Active Substance: CLONAZEPAM
  7. GABAPINTIN [Concomitant]
  8. PROBIOTIC [Concomitant]
     Active Substance: PROBIOTICS NOS
  9. DESEVLOXINE [Concomitant]
  10. ENBREL [Concomitant]
     Active Substance: ETANERCEPT

REACTIONS (8)
  - Tendon pain [None]
  - Movement disorder [None]
  - Fatigue [None]
  - Feeling abnormal [None]
  - Tendonitis [None]
  - Myalgia [None]
  - Gait disturbance [None]
  - Arthralgia [None]

NARRATIVE: CASE EVENT DATE: 20141204
